FAERS Safety Report 4507686-1 (Version None)
Quarter: 2004Q4

REPORT INFORMATION
  Report Type: 
  Country: None (occurrence: None)
  Receive Date: 20041122
  Receipt Date: 20041104
  Transmission Date: 20050328
  Serious: No
  Sender: FDA-Public Use
  Company Number: 2004IC000894

PATIENT
  Sex: Male

DRUGS (5)
  1. PHRENILIN [Suspect]
     Indication: TENSION HEADACHE
     Dates: end: 20040319
  2. PHRENILIN [Suspect]
     Indication: TENSION HEADACHE
     Dates: start: 20040319
  3. PHRENILIN [Suspect]
  4. PHRENILIN [Suspect]
  5. PHRENILIN [Suspect]

REACTIONS (7)
  - BURNING SENSATION [None]
  - DIFFICULTY IN WALKING [None]
  - DIZZINESS [None]
  - DRUG INEFFECTIVE [None]
  - HEADACHE [None]
  - OVERDOSE [None]
  - TREMOR [None]
